FAERS Safety Report 7883573-6 (Version None)
Quarter: 2011Q4

REPORT INFORMATION
  Report Type: 
  Country: None (occurrence: None)
  Receive Date: 20111102
  Receipt Date: 20100512
  Transmission Date: 20120403
  Serious: No
  Sender: FDA-Public Use
  Company Number: US-BAYER-201022167NA

PATIENT
  Sex: Male

DRUGS (2)
  1. AVELOX [Suspect]
     Indication: LYME DISEASE
     Route: 048
  2. DOXYCYCLINE [Concomitant]
     Indication: LYME DISEASE

REACTIONS (1)
  - NO ADVERSE EVENT [None]
